FAERS Safety Report 8104691-3 (Version None)
Quarter: 2012Q1

REPORT INFORMATION
  Report Type: 
  Country: None (occurrence: None)
  Receive Date: 20120201
  Receipt Date: 20120125
  Transmission Date: 20120608
  Serious: No
  Sender: FDA-Public Use
  Company Number: JP-PFIZER INC-2011306065

PATIENT
  Age: 87 Year
  Sex: Female

DRUGS (3)
  1. XALATAN [Suspect]
     Indication: OCULAR HYPERTENSION
     Dosage: 1 GTT, 1X/DAY, IN THE RIGHT EYE
     Route: 047
     Dates: start: 20100701, end: 20111101
  2. MYTEAR [Concomitant]
     Route: 047
  3. ASPIRIN [Concomitant]
     Indication: CEREBRAL INFARCTION

REACTIONS (1)
  - EYELID DISORDER [None]
